FAERS Safety Report 17404597 (Version 6)
Quarter: 2020Q2

REPORT INFORMATION
  Report Type: Report from Study
  Country: US (occurrence: US)
  Receive Date: 20200211
  Receipt Date: 20200424
  Transmission Date: 20200713
  Serious: Yes (Life-Threatening, Hospitalization)
  Sender: FDA-Public Use
  Company Number: US-GILEAD-2020-0450329

PATIENT
  Age: 62 Year
  Sex: Female
  Weight: 78.4 kg

DRUGS (48)
  1. DEXTROSE. [Concomitant]
     Active Substance: DEXTROSE
  2. HEPARIN [Concomitant]
     Active Substance: HEPARIN SODIUM
  3. ZOFRAN [Concomitant]
     Active Substance: ONDANSETRON HYDROCHLORIDE
  4. OXYGEN. [Concomitant]
     Active Substance: OXYGEN
  5. ZYLOPRIM [Concomitant]
     Active Substance: ALLOPURINOL
  6. PRILOSEC [Concomitant]
     Active Substance: OMEPRAZOLE MAGNESIUM
  7. PERCOCET [Concomitant]
     Active Substance: ACETAMINOPHEN\OXYCODONE HYDROCHLORIDE
  8. ASPIRIN [ACETYLSALICYLIC ACID] [Concomitant]
     Active Substance: ASPIRIN
  9. WELLBUTRIN [Concomitant]
     Active Substance: BUPROPION HYDROCHLORIDE
     Dosage: UNK
  10. CALCIUM GLUCONATE. [Concomitant]
     Active Substance: CALCIUM GLUCONATE
  11. FLEXERIL [Concomitant]
     Active Substance: CYCLOBENZAPRINE HYDROCHLORIDE
     Dosage: UNK
  12. LANTUS [Concomitant]
     Active Substance: INSULIN GLARGINE
  13. ROXICODONE [Concomitant]
     Active Substance: OXYCODONE HYDROCHLORIDE
  14. PHENERGAN [Concomitant]
     Active Substance: PROMETHAZINE HYDROCHLORIDE
  15. EMLA [Concomitant]
     Active Substance: LIDOCAINE\PRILOCAINE
  16. TYLENOL [Concomitant]
     Active Substance: ACETAMINOPHEN
  17. ZOVIRAX [Concomitant]
     Active Substance: ACYCLOVIR
     Dosage: UNK
  18. PNEUMOVAX 23 [Concomitant]
     Active Substance: PNEUMOCOCCAL VACCINE, POLYVALENT 23
  19. PROAIR HFA [Concomitant]
     Active Substance: ALBUTEROL SULFATE
     Dosage: UNK
  20. GLUCOTROL [Concomitant]
     Active Substance: GLIPIZIDE
  21. CYCLOPHOSPHAMIDE. [Suspect]
     Active Substance: CYCLOPHOSPHAMIDE
     Indication: NON-HODGKIN^S LYMPHOMA
     Route: 042
  22. TUMS [Concomitant]
     Active Substance: CALCIUM CARBONATE
  23. POTASSIUM CHLORIDE. [Concomitant]
     Active Substance: POTASSIUM CHLORIDE
  24. AXICABTAGENE CILOLEUCEL [Suspect]
     Active Substance: AXICABTAGENE CILOLEUCEL
     Indication: NON-HODGKIN^S LYMPHOMA
     Dosage: 68 ML
     Route: 042
     Dates: start: 20190614, end: 20190614
  25. HUMALOG [Concomitant]
     Active Substance: INSULIN LISPRO
  26. MORPHINE [Concomitant]
     Active Substance: MORPHINE
  27. DAKIN [SODIUM HYPOCHLORITE] [Concomitant]
     Active Substance: SODIUM HYPOCHLORITE
  28. TOPAMAX [Concomitant]
     Active Substance: TOPIRAMATE
     Dosage: 50 MG, BID
     Dates: end: 202002
  29. TOPAMAX [Concomitant]
     Active Substance: TOPIRAMATE
     Dosage: 25 MG, BID
     Dates: start: 202002
  30. LOVENOX [Concomitant]
     Active Substance: ENOXAPARIN SODIUM
  31. ACCUPRIL [Concomitant]
     Active Substance: QUINAPRIL HYDROCHLORIDE
  32. FLUDARABINE [Suspect]
     Active Substance: FLUDARABINE PHOSPHATE
     Indication: NON-HODGKIN^S LYMPHOMA
     Route: 042
  33. LIPITOR [Concomitant]
     Active Substance: ATORVASTATIN CALCIUM
     Dosage: UNK
  34. COLACE [Concomitant]
     Active Substance: DOCUSATE SODIUM
  35. CHANTIX [Concomitant]
     Active Substance: VARENICLINE TARTRATE
  36. CLARITIN [Concomitant]
     Active Substance: LORATADINE
  37. ZANTAC [Concomitant]
     Active Substance: RANITIDINE HYDROCHLORIDE
  38. PROTONIX [Concomitant]
     Active Substance: PANTOPRAZOLE SODIUM
     Dosage: UNK
  39. CBD OIL [Concomitant]
     Active Substance: CANNABIDIOL\HERBALS
  40. TOPROL XL [Concomitant]
     Active Substance: METOPROLOL SUCCINATE
  41. NUCYNTA [Concomitant]
     Active Substance: TAPENTADOL HYDROCHLORIDE
  42. GLUCAGEN [GLUCAGON] [Concomitant]
  43. ERYTHROMYCIN. [Concomitant]
     Active Substance: ERYTHROMYCIN
     Dosage: UNK
  44. CULTURELLE [Concomitant]
     Active Substance: LACTOBACILLUS RHAMNOSUS
  45. ELIQUIS [Concomitant]
     Active Substance: APIXABAN
     Dosage: UNK
  46. CINNAMON BARK [Concomitant]
     Active Substance: CINNAMON\HERBALS
  47. COMPAZINE [Concomitant]
     Active Substance: PROCHLORPERAZINE MALEATE
  48. SUCRALFATE. [Concomitant]
     Active Substance: SUCRALFATE

REACTIONS (1)
  - Sepsis [Recovering/Resolving]

NARRATIVE: CASE EVENT DATE: 20200202
